FAERS Safety Report 4392720-2 (Version None)
Quarter: 2004Q3

REPORT INFORMATION
  Report Type: 
  Country: None (occurrence: None)
  Receive Date: 20040702
  Receipt Date: 20040618
  Transmission Date: 20050211
  Serious: Yes (Hospitalization)
  Sender: FDA-Public Use
  Company Number: 2004-00102

PATIENT
  Age: 73 Year
  Sex: Female
  Weight: 46 kg

DRUGS (5)
  1. VELCADE [Suspect]
     Dosage: SEE IMAGE
     Route: 042
     Dates: start: 20031013, end: 20031023
  2. VELCADE [Suspect]
     Dosage: SEE IMAGE
     Route: 042
     Dates: start: 20031110, end: 20031120
  3. VELCADE [Suspect]
     Dosage: SEE IMAGE
     Route: 042
     Dates: start: 20031208, end: 20031208
  4. VELCADE [Suspect]
     Dosage: SEE IMAGE
     Route: 042
     Dates: start: 20031211, end: 20031211
  5. VELCADE [Suspect]
     Dosage: SEE IMAGE
     Route: 042
     Dates: start: 20031215, end: 20031218

REACTIONS (4)
  - DYSPHAGIA [None]
  - ENTERITIS [None]
  - RETCHING [None]
  - SUBILEUS [None]
